FAERS Safety Report 7537123-4 (Version None)
Quarter: 2011Q2

REPORT INFORMATION
  Report Type: 
  Country: None (occurrence: None)
  Receive Date: 20110609
  Receipt Date: 20110602
  Transmission Date: 20111010
  Serious: Yes (Death, Other)
  Sender: FDA-Public Use
  Company Number: PHHY2011CA47630

PATIENT
  Sex: Female

DRUGS (9)
  1. HABITROL [Concomitant]
     Dosage: 14 UG, AS DIRECTED
  2. CLOZAPINE [Suspect]
     Indication: SCHIZOPHRENIA
     Dosage: 100 MG, 6 AS DIRECTED
     Route: 048
     Dates: start: 19940208, end: 20110501
  3. DIVALPROEX SODIUM [Concomitant]
     Dosage: 250 MG, UNK
  4. FLOVENT [Concomitant]
     Dosage: 125 UG, BID
  5. DOCUSATE CALCIUM [Concomitant]
     Dosage: 240 MG, UNK
  6. VITAMIN D [Concomitant]
     Dosage: 1000 U, UNK
     Route: 048
  7. VENTOLIN HFA [Concomitant]
     Dosage: 2 PUFFS, QID PM
  8. TYLENOL-500 [Concomitant]
     Dosage: 3, 1-2 Q4H PM
     Route: 048
  9. SPIRIVA [Concomitant]
     Dosage: 18 UG, UNK

REACTIONS (4)
  - URINARY INCONTINENCE [None]
  - TOBACCO USER [None]
  - LUNG NEOPLASM MALIGNANT [None]
  - CHRONIC OBSTRUCTIVE PULMONARY DISEASE [None]
